FAERS Safety Report 5182440-9 (Version None)
Quarter: 2006Q4

REPORT INFORMATION
  Report Type: 
  Country: None (occurrence: None)
  Receive Date: 20061220
  Receipt Date: 20060914
  Transmission Date: 20070319
  Serious: No
  Sender: FDA-Public Use
  Company Number: US-GLAXOSMITHKLINE-A0620313A

PATIENT
  Age: 25 Year
  Sex: Male

DRUGS (1)
  1. COMMIT [Suspect]
     Route: 048
     Dates: start: 20060909, end: 20060910

REACTIONS (4)
  - DYSGEUSIA [None]
  - INCREASED UPPER AIRWAY SECRETION [None]
  - RETCHING [None]
  - THROAT IRRITATION [None]
